FAERS Safety Report 9154324 (Version 2)
Quarter: 2013Q2

REPORT INFORMATION
  Report Type: Spontaneous
  Country: US (occurrence: US)
  Receive Date: 20130311
  Receipt Date: 20130401
  Transmission Date: 20140414
  Serious: Yes (Other)
  Sender: FDA-Public Use
  Company Number: US-PFIZER INC-2013082166

PATIENT
  Age: 56 Year
  Sex: Female
  Weight: 125 kg

DRUGS (1)
  1. PRISTIQ [Suspect]
     Dosage: 50 MG DAILY
     Dates: start: 200603

REACTIONS (2)
  - Lower limb fracture [Unknown]
  - Limb crushing injury [Unknown]
